FAERS Safety Report 6144623-0 (Version None)
Quarter: 2009Q2

REPORT INFORMATION
  Report Type: 
  Country: None (occurrence: None)
  Receive Date: 20090401
  Receipt Date: 20090317
  Transmission Date: 20091009
  Serious: Yes (Other)
  Sender: FDA-Public Use
  Company Number: 8044314

PATIENT

DRUGS (1)
  1. KEPPRA [Suspect]

REACTIONS (1)
  - LEUKOPENIA [None]
